FAERS Safety Report 8795833 (Version 2)
Quarter: 2012Q4

REPORT INFORMATION
  Report Type: 
  Country: JP (occurrence: JP)
  Receive Date: 20120919
  Receipt Date: 20121002
  Transmission Date: 20130627
  Serious: Yes (Other)
  Sender: FDA-Public Use
  Company Number: JP-EISAI INC-E2090-02301-SPO-JP

PATIENT
  Sex: Male

DRUGS (7)
  1. TRERIEF [Suspect]
     Indication: PARKINSON^S DISEASE
     Route: 048
     Dates: start: 20120830, end: 20120910
  2. NEODOPASTON [Concomitant]
     Dosage: 2 dosage forms/day
     Route: 048
  3. SERMION [Concomitant]
     Dosage: 15 mg/day
     Route: 048
  4. ARICEPT [Concomitant]
     Dosage: 1 dosage form/day
     Route: 048
  5. DOPS [Concomitant]
     Dosage: 2 dosage forms/day
     Route: 048
  6. RHYTHMY [Concomitant]
     Dosage: unknown
     Route: 048
  7. RIVOTRIL [Concomitant]
     Dosage: unknown
     Route: 048

REACTIONS (2)
  - Hypokinesia [Unknown]
  - Pollakiuria [Recovering/Resolving]
